FAERS Safety Report 4322843-5 (Version None)
Quarter: 2004Q1

REPORT INFORMATION
  Report Type: 
  Country: None (occurrence: None)
  Receive Date: 20040324
  Receipt Date: 20040312
  Transmission Date: 20041129
  Serious: Yes (Other)
  Sender: FDA-Public Use
  Company Number: PHBS2004ES03531

PATIENT
  Age: 6 Year
  Sex: Male

DRUGS (2)
  1. TRILEPTAL [Suspect]
  2. ORAB [Concomitant]

REACTIONS (2)
  - DRUG INTOLERANCE [None]
  - TOURETTE'S DISORDER [None]
